FAERS Safety Report 11748310 (Version 3)
Quarter: 2015Q4

REPORT INFORMATION
  Report Type: Report from Study
  Country: US (occurrence: US)
  Receive Date: 20151117
  Receipt Date: 20151211
  Transmission Date: 20160304
  Serious: Yes (Hospitalization, Other)
  Sender: FDA-Public Use
  Company Number: US-ACTELION-A-US2015-124539

PATIENT
  Age: 55 Year
  Sex: Male

DRUGS (9)
  1. SILDENAFIL. [Concomitant]
     Active Substance: SILDENAFIL
     Dosage: 20 MG, TID
  2. DIGOXIN. [Concomitant]
     Active Substance: DIGOXIN
     Dosage: 0.25 MG, QD
  3. LASIX [Concomitant]
     Active Substance: FUROSEMIDE
     Dosage: 80 MG, BID
  4. VENTAVIS [Suspect]
     Active Substance: ILOPROST
     Indication: PULMONARY HYPERTENSION
     Dosage: 5 MCG, 6-9X/DAILY
     Route: 055
     Dates: start: 20140910
  5. VENTAVIS [Suspect]
     Active Substance: ILOPROST
     Dosage: UNK, 6-7X/DAILY
     Route: 055
  6. MACITENTAN [Suspect]
     Active Substance: MACITENTAN
     Indication: PULMONARY HYPERTENSION
     Dosage: 10 MG, QD
     Route: 048
  7. DILTIAZEM [Concomitant]
     Active Substance: DILTIAZEM
     Dosage: 60 MG, QID
  8. COUMADIN [Concomitant]
     Active Substance: WARFARIN SODIUM
  9. TREPROSTINIL DIOLAMIN [Suspect]
     Active Substance: TREPROSTINIL DIOLAMINE
     Indication: PRODUCT USED FOR UNKNOWN INDICATION
     Route: 065

REACTIONS (14)
  - Dizziness [Unknown]
  - Drug intolerance [Unknown]
  - Splenic haematoma [Unknown]
  - Asthenia [Unknown]
  - Somnolence [Unknown]
  - Flatulence [Unknown]
  - Acute kidney injury [Unknown]
  - Condition aggravated [Unknown]
  - Diarrhoea [Unknown]
  - Dyspnoea [Unknown]
  - Ascites [Unknown]
  - Chest pain [Unknown]
  - Oedema peripheral [Unknown]
  - Abdominal discomfort [Unknown]
